FAERS Safety Report 7459838-9 (Version None)
Quarter: 2011Q2

REPORT INFORMATION
  Report Type: 
  Country: None (occurrence: None)
  Receive Date: 20110504
  Receipt Date: 20110504
  Transmission Date: 20111010
  Serious: Yes (Hospitalization, Other)
  Sender: FDA-Public Use
  Company Number: None

PATIENT
  Sex: Female
  Weight: 113.3993 kg

DRUGS (1)
  1. ACTOS [Suspect]
     Indication: DIABETES MELLITUS
     Dosage: 10M 2 DAILY PO
     Route: 048
     Dates: start: 19970915, end: 19980528

REACTIONS (4)
  - DYSPNOEA [None]
  - NAUSEA [None]
  - CHEST DISCOMFORT [None]
  - FEELING ABNORMAL [None]
